FAERS Safety Report 23222660 (Version 1)
Quarter: 2023Q4

REPORT INFORMATION
  Report Type: Spontaneous
  Country: CN (occurrence: CN)
  Receive Date: 20231123
  Receipt Date: 20231123
  Transmission Date: 20240109
  Serious: Yes (Other)
  Sender: FDA-Public Use
  Company Number: CN-SA-SAC20231114001402

PATIENT
  Age: 77 Year
  Sex: Male

DRUGS (2)
  1. CLOPIDOGREL BISULFATE [Suspect]
     Active Substance: CLOPIDOGREL BISULFATE
     Indication: Cerebral infarction
     Dosage: 0.1 G, QD
     Route: 048
     Dates: start: 20231105, end: 20231109
  2. ASPIRIN [Suspect]
     Active Substance: ASPIRIN
     Indication: Platelet aggregation inhibition
     Dosage: 0.1 G, QD
     Route: 048
     Dates: start: 20231105, end: 20231110

REACTIONS (12)
  - Hemiparesis [Recovering/Resolving]
  - Mental impairment [Recovering/Resolving]
  - Dysarthria [Recovering/Resolving]
  - Decreased nasolabial fold [Recovering/Resolving]
  - Hypertonia [Recovering/Resolving]
  - Extensor plantar response [Recovering/Resolving]
  - Protrusion tongue [Recovering/Resolving]
  - Muscle strength abnormal [Recovering/Resolving]
  - Scleral haemorrhage [Recovering/Resolving]
  - Scleral hyperaemia [Recovering/Resolving]
  - Ocular discomfort [Recovering/Resolving]
  - Platelet count decreased [Recovering/Resolving]

NARRATIVE: CASE EVENT DATE: 20231101
